FAERS Safety Report 6312685-3 (Version None)
Quarter: 2009Q3

REPORT INFORMATION
  Report Type: 
  Country: None (occurrence: None)
  Receive Date: 20090814
  Receipt Date: 20090814
  Transmission Date: 20100115
  Serious: Yes (Other)
  Sender: FDA-Public Use
  Company Number: None

PATIENT
  Age: 37 Year
  Sex: Male
  Weight: 79.3795 kg

DRUGS (1)
  1. CIPROFLAXACIN [Suspect]
     Indication: INFECTION
     Dates: start: 20090403, end: 20090412

REACTIONS (1)
  - TENDONITIS [None]
